FAERS Safety Report 7512564-X (Version None)
Quarter: 2011Q2

REPORT INFORMATION
  Report Type: 
  Country: None (occurrence: None)
  Receive Date: 20110531
  Receipt Date: 20110523
  Transmission Date: 20111010
  Serious: Yes (Other)
  Sender: FDA-Public Use
  Company Number: AU-ROCHE-779268

PATIENT
  Age: 55 Year
  Sex: Male

DRUGS (2)
  1. MYCOPHENOLATE MEFETIL [Suspect]
     Route: 065
  2. COTRIM [Suspect]
     Indication: PNEUMOCYSTIS JIROVECI INFECTION
     Route: 065

REACTIONS (3)
  - POLYOMAVIRUS-ASSOCIATED NEPHROPATHY [None]
  - PNEUMOCYSTIS JIROVECI INFECTION [None]
  - PANCYTOPENIA [None]
